FAERS Safety Report 7798348-6 (Version None)
Quarter: 2011Q4

REPORT INFORMATION
  Report Type: 
  Country: None (occurrence: None)
  Receive Date: 20111005
  Receipt Date: 20110922
  Transmission Date: 20120403
  Serious: Yes (Congenital Anomaly)
  Sender: FDA-Public Use
  Company Number: DE-ARROW GEN-2011-15214

PATIENT
  Sex: Male
  Weight: 3.57 kg

DRUGS (2)
  1. CITALOPRAM HYDROBROMIDE [Suspect]
     Indication: DEPRESSION
     Dosage: 20 MG, DAILY
     Route: 064
  2. FOLIC ACID [Concomitant]
     Indication: PROPHYLAXIS OF NEURAL TUBE DEFECT
     Dosage: 0.4 MG, DAILY
     Route: 064

REACTIONS (2)
  - ATRIAL SEPTAL DEFECT [None]
  - HAEMANGIOMA CONGENITAL [None]
